FAERS Safety Report 17797566 (Version 1)
Quarter: 2020Q2

REPORT INFORMATION
  Report Type: Spontaneous
  Country: US (occurrence: US)
  Receive Date: 20200518
  Receipt Date: 20200518
  Transmission Date: 20200714
  Serious: No
  Sender: FDA-Public Use
  Company Number: US-BAYER-2020-087152

PATIENT
  Age: 27 Year
  Sex: Male

DRUGS (1)
  1. BETASERON [Suspect]
     Active Substance: INTERFERON BETA-1B
     Indication: MULTIPLE SCLEROSIS
     Dosage: 0.25 MG
     Dates: start: 2019

REACTIONS (4)
  - Vomiting [None]
  - Migraine [Recovered/Resolved]
  - Insomnia [None]
  - Nausea [None]

NARRATIVE: CASE EVENT DATE: 202004
